FAERS Safety Report 17611247 (Version 1)
Quarter: 2020Q2

REPORT INFORMATION
  Report Type: Spontaneous
  Country: US (occurrence: US)
  Receive Date: 20200401
  Receipt Date: 20200401
  Transmission Date: 20200713
  Serious: No
  Sender: FDA-Public Use
  Company Number: US-SA-2020SA077687

PATIENT
  Age: 54 Year
  Sex: Female
  Weight: 75.74 kg

DRUGS (15)
  1. BRILINTA [Concomitant]
     Active Substance: TICAGRELOR
  2. NORMAL SALINE [Concomitant]
     Active Substance: SODIUM CHLORIDE
  3. CITALOPRAM [Concomitant]
     Active Substance: CITALOPRAM HYDROBROMIDE
  4. FABRAZYME [Suspect]
     Active Substance: AGALSIDASE BETA
     Indication: FABRY^S DISEASE
     Dosage: 80 MG, QOW
     Route: 041
     Dates: start: 20190723
  5. SODIUM CHLORIDE. [Concomitant]
     Active Substance: SODIUM CHLORIDE
  6. BIOTIN [Concomitant]
     Active Substance: BIOTIN
  7. VITAMINS NOS [Concomitant]
     Active Substance: VITAMINS
  8. STERILE WATER [Concomitant]
     Active Substance: WATER
  9. EPINEPHRINE. [Concomitant]
     Active Substance: EPINEPHRINE
  10. LEVOXYL [Concomitant]
     Active Substance: LEVOTHYROXINE SODIUM
  11. METFORMIN [Concomitant]
     Active Substance: METFORMIN HYDROCHLORIDE
  12. ATORVASTATIN [Concomitant]
     Active Substance: ATORVASTATIN
  13. DIOVAN HCT [Concomitant]
     Active Substance: HYDROCHLOROTHIAZIDE\VALSARTAN
  14. ASPIRIN 81 [Concomitant]
     Active Substance: ASPIRIN
  15. TOPROL XL [Concomitant]
     Active Substance: METOPROLOL SUCCINATE

REACTIONS (2)
  - Cough [Unknown]
  - Nasal congestion [Unknown]
